FAERS Safety Report 9268979 (Version 2)
Quarter: 2013Q2

REPORT INFORMATION
  Report Type: Spontaneous
  Country: US (occurrence: US)
  Receive Date: 20130503
  Receipt Date: 20130515
  Transmission Date: 20140414
  Serious: Yes (Hospitalization)
  Sender: FDA-Public Use
  Company Number: US-009507513-1304USA016666

PATIENT
  Age: 49 Year
  Sex: Male

DRUGS (18)
  1. VICTRELIS [Suspect]
     Indication: LIVER DISORDER
     Dosage: 4 DF, TID
     Route: 048
     Dates: start: 20130409
  2. VICTRELIS [Suspect]
     Indication: LIVER TRANSPLANT
  3. VICTRELIS [Suspect]
     Indication: HEPATITIS C
  4. PEGASYS [Suspect]
     Dosage: UNK
     Dates: start: 20130128
  5. RIBASPHERE [Suspect]
     Dosage: UNK
     Dates: start: 20130128
  6. PROCRIT [Concomitant]
     Dosage: UNK
  7. METHADONE HYDROCHLORIDE [Concomitant]
     Dosage: UNK
  8. PANTOPRAZOLE [Concomitant]
     Dosage: UNK
  9. MYCOPHENOLATE MOFETIL [Concomitant]
     Dosage: UNK
  10. NORVASC [Concomitant]
     Dosage: UNK
  11. REBETOL [Concomitant]
     Dosage: UNK
  12. OS-CAL + D [Concomitant]
     Dosage: UNK
  13. METOPROLOL [Concomitant]
     Dosage: UNK
  14. PROGRAFT [Concomitant]
     Dosage: UNK
  15. MAGNESIUM (UNSPECIFIED) [Concomitant]
     Dosage: UNK
  16. ASPIRIN [Concomitant]
     Dosage: UNK
  17. ACTIGALL [Concomitant]
     Dosage: UNK
  18. SEPTRA [Concomitant]
     Dosage: UNK

REACTIONS (1)
  - Hospitalisation [Unknown]
